FAERS Safety Report 10355517 (Version 4)
Quarter: 2014Q3

REPORT INFORMATION
  Report Type: Report from Study
  Country: DE (occurrence: DE)
  Receive Date: 20140731
  Receipt Date: 20140822
  Transmission Date: 20150326
  Serious: Yes (Other)
  Sender: FDA-Public Use
  Company Number: DE-ROCHE-1439296

PATIENT
  Age: 78 Year
  Sex: Male
  Weight: 74 kg

DRUGS (7)
  1. MCP [Concomitant]
     Active Substance: METOCLOPRAMIDE HYDROCHLORIDE
     Route: 065
     Dates: start: 20131128
  2. SOLARAZE GEL [Concomitant]
     Route: 065
     Dates: start: 20140120, end: 20140222
  3. OPTIDERM (GERMANY) [Concomitant]
     Route: 065
     Dates: start: 201402
  4. VISMODEGIB [Suspect]
     Active Substance: VISMODEGIB
     Indication: BASAL CELL CARCINOMA
     Dosage: MOST RECENT DOSE PRIOR TO THE EVENT: 23/DEC/2013
     Route: 048
     Dates: start: 20131223, end: 20140114
  5. VARDENAFIL [Concomitant]
     Active Substance: VARDENAFIL
     Indication: ERECTILE DYSFUNCTION
     Route: 065
     Dates: start: 20100515
  6. ATORVASTATIN [Concomitant]
     Active Substance: ATORVASTATIN
     Indication: PROPHYLAXIS
     Route: 065
     Dates: start: 1988
  7. LEVITRA [Concomitant]
     Active Substance: VARDENAFIL HYDROCHLORIDE TRIHYDRATE
     Indication: PROPHYLAXIS

REACTIONS (1)
  - Platelet count decreased [Recovered/Resolved]

NARRATIVE: CASE EVENT DATE: 20131223
